FAERS Safety Report 8551932-4 (Version None)
Quarter: 2012Q3

REPORT INFORMATION
  Report Type: 
  Country: None (occurrence: None)
  Receive Date: 20120730
  Receipt Date: 20120719
  Transmission Date: 20120928
  Serious: Yes (Other)
  Sender: FDA-Public Use
  Company Number: US-JNJFOC-20120402522

PATIENT
  Sex: Male
  Weight: 81.65 kg

DRUGS (8)
  1. SUDAFED 12 HOUR [Suspect]
     Indication: SINUS CONGESTION
     Route: 048
     Dates: start: 20120330, end: 20120330
  2. SUDAFED 12 HOUR [Suspect]
     Route: 048
     Dates: start: 20120329, end: 20120329
  3. SUDAFED 12 HOUR [Suspect]
     Indication: UPPER-AIRWAY COUGH SYNDROME
     Route: 048
     Dates: start: 20120327
  4. SUDAFED 12 HOUR [Suspect]
     Route: 048
     Dates: start: 20120327
  5. SUDAFED 12 HOUR [Suspect]
     Route: 048
     Dates: start: 20120329, end: 20120329
  6. SUDAFED 12 HOUR [Suspect]
     Route: 048
     Dates: start: 20120330, end: 20120330
  7. SUDAFED 12 HOUR [Suspect]
     Route: 048
     Dates: start: 20120328, end: 20120328
  8. SUDAFED 12 HOUR [Suspect]
     Route: 048
     Dates: start: 20120328, end: 20120328

REACTIONS (2)
  - URINARY RETENTION [None]
  - PROSTATITIS [None]
